FAERS Safety Report 13954132 (Version 1)
Quarter: 2017Q3

REPORT INFORMATION
  Report Type: Spontaneous
  Country: US (occurrence: None)
  Receive Date: 20170909
  Receipt Date: 20170909
  Transmission Date: 20171128
  Serious: Yes (Death, Hospitalization)
  Sender: FDA-Public Use
  Company Number: None

PATIENT
  Sex: Female
  Weight: 10.74 kg

DRUGS (6)
  1. METHOTREXATE. [Suspect]
     Active Substance: METHOTREXATE
     Dates: end: 20160412
  2. VINCRISTINE SULFATE. [Suspect]
     Active Substance: VINCRISTINE SULFATE
     Dates: end: 20160419
  3. DEXAMETHASONE. [Suspect]
     Active Substance: DEXAMETHASONE
     Dosage: HELD FOR 3 DOSES (DAY 22-23)
     Dates: end: 20160430
  4. CYTARABINE. [Suspect]
     Active Substance: CYTARABINE
     Dates: end: 20160404
  5. LEUCOVORIN CALCIUM. [Suspect]
     Active Substance: LEUCOVORIN CALCIUM
     Dates: end: 20160415
  6. ONCASPAR [Suspect]
     Active Substance: PEGASPARGASE
     Dates: end: 20160408

REACTIONS (16)
  - Mesenteric venous occlusion [None]
  - Hypoxia [None]
  - Hepatic necrosis [None]
  - Pancreatic necrosis [None]
  - Intussusception [None]
  - Intentional dose omission [None]
  - Gastrointestinal necrosis [None]
  - Acidosis [None]
  - Neuropathy peripheral [None]
  - Mesenteric vein thrombosis [None]
  - Hepatic vascular thrombosis [None]
  - Thrombosis [None]
  - Colitis [None]
  - Areflexia [None]
  - Fungal infection [None]
  - Splenic necrosis [None]

NARRATIVE: CASE EVENT DATE: 20160501
